FAERS Safety Report 12581809 (Version 2)
Quarter: 2016Q3

REPORT INFORMATION
  Report Type: Spontaneous
  Country: IT (occurrence: IT)
  Receive Date: 20160722
  Receipt Date: 20160725
  Transmission Date: 20161109
  Serious: Yes (Other)
  Sender: FDA-Public Use
  Company Number: IT-009507513-1607ITA008429

PATIENT
  Age: 25 Year
  Sex: Female

DRUGS (5)
  1. SAMYR [Suspect]
     Active Substance: ADEMETIONINE
     Indication: DEPRESSION
     Dosage: 400 MG, TOTAL: 1 DOSE UNIT
     Route: 048
     Dates: start: 20160404, end: 20160404
  2. SERTRALINE HYDROCHLORIDE. [Suspect]
     Active Substance: SERTRALINE HYDROCHLORIDE
     Indication: DEPRESSION
     Dosage: TOTAL: 25 DOSE UNITS
     Route: 048
     Dates: start: 20160404, end: 20160404
  3. MIRTAZAPINE. [Suspect]
     Active Substance: MIRTAZAPINE
     Indication: DEPRESSION
     Dosage: TOTAL: 20 DOSE UNIT
     Route: 048
     Dates: start: 20160404, end: 20160404
  4. ZOLPIDEM [Suspect]
     Active Substance: ZOLPIDEM\ZOLPIDEM TARTRATE
     Indication: DEPRESSION
     Dosage: TOTAL: 20 DOSE UNITS
     Route: 048
     Dates: start: 20160404, end: 20160404
  5. ESCITALOPRAM [Suspect]
     Active Substance: ESCITALOPRAM OXALATE
     Indication: DEPRESSION
     Dosage: TOTAL: 10 DROPS,  FORMULATION: DROPS
     Route: 048
     Dates: start: 20160404, end: 20160404

REACTIONS (2)
  - Sopor [Recovering/Resolving]
  - Drug abuse [Recovering/Resolving]

NARRATIVE: CASE EVENT DATE: 20160404
